FAERS Safety Report 8180797-8 (Version None)
Quarter: 2012Q1

REPORT INFORMATION
  Report Type: 
  Country: None (occurrence: None)
  Receive Date: 20120302
  Receipt Date: 20120208
  Transmission Date: 20120608
  Serious: Yes (Other)
  Sender: FDA-Public Use
  Company Number: US-ROCHE-1041187

PATIENT
  Age: 72 Year
  Sex: Female

DRUGS (6)
  1. CORTISONE ACETATE [Concomitant]
  2. BONIVA [Suspect]
     Indication: OSTEOPOROSIS POSTMENOPAUSAL
     Route: 048
  3. VITAMIN D [Concomitant]
  4. TRICOR [Concomitant]
     Indication: BLOOD CHOLESTEROL INCREASED
  5. NORVASC [Concomitant]
     Indication: HYPERTENSION
  6. ASCORBIC ACID [Concomitant]

REACTIONS (6)
  - KNEE ARTHROPLASTY [None]
  - ARTHRITIS [None]
  - CARTILAGE INJURY [None]
  - DENTAL OPERATION [None]
  - ENDODONTIC PROCEDURE [None]
  - MENISCUS LESION [None]
